FAERS Safety Report 7171935-4 (Version None)
Quarter: 2010Q4

REPORT INFORMATION
  Report Type: 
  Country: None (occurrence: None)
  Receive Date: 20101217
  Receipt Date: 20101214
  Transmission Date: 20110411
  Serious: Yes (Hospitalization, Disabling, Other)
  Sender: FDA-Public Use
  Company Number: US-MERCK-1011USA02086

PATIENT
  Age: 80 Year
  Sex: Female

DRUGS (7)
  1. FOSAMAX [Suspect]
     Indication: OSTEOPOROSIS
     Route: 048
     Dates: start: 20050101, end: 20101111
  2. TOPROL-XL [Concomitant]
     Indication: BLOOD PRESSURE
     Route: 065
  3. PLAVIX [Concomitant]
     Route: 065
  4. MICARDIS [Concomitant]
     Route: 065
  5. NORVASC [Concomitant]
     Route: 065
  6. PREDNISONE [Concomitant]
     Indication: TEMPORAL ARTERITIS
     Route: 065
     Dates: start: 20030101
  7. CARDAMOM SEED [Concomitant]
     Route: 065

REACTIONS (1)
  - FEMUR FRACTURE [None]
